FAERS Safety Report 19395817 (Version 2)
Quarter: 2021Q3

REPORT INFORMATION
  Report Type: Spontaneous
  Country: US (occurrence: US)
  Receive Date: 20210609
  Receipt Date: 20210715
  Transmission Date: 20211014
  Serious: No
  Sender: FDA-Public Use
  Company Number: US-MYLANLABS-2021M1030668

PATIENT
  Age: 73 Year
  Sex: Female
  Weight: 67 kg

DRUGS (11)
  1. VITAMIN D3 [Concomitant]
     Active Substance: CHOLECALCIFEROL
     Dosage: UNK
  2. MAGNESIUM CITRATE;ZINC [Concomitant]
     Dosage: UNK
  3. VITAMIN C [Concomitant]
     Active Substance: ASCORBIC ACID
     Dosage: UNK
  4. LEVOTHYROXINE MYLAN [Suspect]
     Active Substance: LEVOTHYROXINE
     Indication: THYROIDECTOMY
     Dosage: 50 MICROGRAM, BID
     Route: 048
     Dates: start: 202105, end: 2021
  5. GUAIFENESIN. [Concomitant]
     Active Substance: GUAIFENESIN
     Dosage: UNK
  6. VITAMIN B [Concomitant]
     Active Substance: VITAMIN B
     Dosage: UNK
  7. INOSITOL HEXANICOTINATE [Concomitant]
     Active Substance: INOSITOL NIACINATE
     Dosage: UNK
  8. LEVOTHYROXINE MYLAN [Suspect]
     Active Substance: LEVOTHYROXINE
     Indication: HYPOTHYROIDISM
  9. VITAMIN E                          /00110501/ [Concomitant]
     Active Substance: TOCOPHEROL
     Dosage: UNK
  10. CALCIUM [Concomitant]
     Active Substance: CALCIUM
     Dosage: UNK
  11. NIACIN. [Concomitant]
     Active Substance: NIACIN
     Dosage: UNK

REACTIONS (2)
  - Asthma [Recovered/Resolved]
  - Product physical issue [Unknown]

NARRATIVE: CASE EVENT DATE: 202105
